FAERS Safety Report 7844450-X (Version None)
Quarter: 2011Q4

REPORT INFORMATION
  Report Type: 
  Country: None (occurrence: None)
  Receive Date: 20111025
  Receipt Date: 20111011
  Transmission Date: 20120403
  Serious: Yes (Death)
  Sender: FDA-Public Use
  Company Number: PE-MERCK-1110PER00004

PATIENT
  Age: 2 Month
  Sex: Male

DRUGS (3)
  1. AMPHOTERICIN B [Concomitant]
     Indication: FUNGAL INFECTION
     Route: 065
     Dates: start: 20110901, end: 20110901
  2. CANCIDAS [Suspect]
     Indication: FUNGAL INFECTION
     Route: 051
     Dates: start: 20111012, end: 20111012
  3. CANCIDAS [Suspect]
     Route: 051
     Dates: start: 20111009, end: 20111010

REACTIONS (3)
  - OFF LABEL USE [None]
  - RESPIRATORY ARREST [None]
  - RESPIRATORY RATE DECREASED [None]
